FAERS Safety Report 8359749-0 (Version None)
Quarter: 2012Q2

REPORT INFORMATION
  Report Type: 
  Country: None (occurrence: None)
  Receive Date: 20120515
  Receipt Date: 20120504
  Transmission Date: 20120825
  Serious: Yes (Death, Other)
  Sender: FDA-Public Use
  Company Number: PHHY2012TH040300

PATIENT

DRUGS (1)
  1. GLEEVEC [Suspect]
     Indication: CHRONIC MYELOID LEUKAEMIA
     Dosage: UNK UKN, UNK

REACTIONS (5)
  - PANCYTOPENIA [None]
  - DRUG INTOLERANCE [None]
  - THERAPEUTIC RESPONSE DECREASED [None]
  - DEATH [None]
  - BONE MARROW FAILURE [None]
